FAERS Safety Report 6121219-8 (Version None)
Quarter: 2009Q1

REPORT INFORMATION
  Report Type: 
  Country: None (occurrence: None)
  Receive Date: 20090312
  Receipt Date: 20090312
  Transmission Date: 20090719
  Serious: Yes (Other)
  Sender: FDA-Public Use
  Company Number: None

PATIENT
  Age: 62 Year
  Sex: Female
  Weight: 65.7716 kg

DRUGS (2)
  1. LEVAQUIN [Suspect]
     Indication: RENAL DISORDER
     Dosage: 500MG 1 DAILY PO
     Route: 048
     Dates: start: 20090103, end: 20090110
  2. LEVAQUIN [Suspect]
     Indication: SINUSITIS
     Dosage: 500MG 1 DAILY PO
     Route: 048
     Dates: start: 20090103, end: 20090110

REACTIONS (7)
  - ARTHRALGIA [None]
  - CONDITION AGGRAVATED [None]
  - GAIT DISTURBANCE [None]
  - MUSCLE SPASMS [None]
  - MUSCULOSKELETAL PAIN [None]
  - PAIN IN EXTREMITY [None]
  - TENDON PAIN [None]
